FAERS Safety Report 20766972 (Version 1)
Quarter: 2022Q2

REPORT INFORMATION
  Report Type: Spontaneous
  Country: FR (occurrence: FR)
  Receive Date: 20220429
  Receipt Date: 20220429
  Transmission Date: 20220721
  Serious: Yes (Other)
  Sender: FDA-Public Use
  Company Number: None

PATIENT
  Age: 72 Year
  Sex: Male
  Weight: 65 kg

DRUGS (4)
  1. ACETAMINOPHEN [Suspect]
     Active Substance: ACETAMINOPHEN
     Indication: Gout
     Dosage: DURATION : 8 DAY
     Route: 048
     Dates: start: 20220113, end: 20220121
  2. ALLOPURINOL [Suspect]
     Active Substance: ALLOPURINOL
     Indication: Gout
     Dosage: UNIT DOSE: 32 DF, FREQUENCY TIME : 1 TOTAL, DURATION : 32 DAYS
     Route: 048
     Dates: start: 20220128
  3. COLCHICINE [Suspect]
     Active Substance: COLCHICINE
     Indication: Gout
     Dosage: DURATION :8 DAY
     Route: 048
     Dates: start: 20220113, end: 20220121
  4. COLCHICINE [Suspect]
     Active Substance: COLCHICINE
     Dosage: DURATION : 10 DAY
     Route: 048
     Dates: start: 20220228, end: 20220310

REACTIONS (2)
  - Pruritus [Recovering/Resolving]
  - Rash pustular [Recovering/Resolving]

NARRATIVE: CASE EVENT DATE: 20220131
